FAERS Safety Report 9387443 (Version 2)
Quarter: 2013Q4

REPORT INFORMATION
  Report Type: Spontaneous
  Country: GB (occurrence: GB)
  Receive Date: 20130708
  Receipt Date: 20131108
  Transmission Date: 20140711
  Serious: Yes (Disabling, Other)
  Sender: FDA-Public Use
  Company Number: GB-ASTRAZENECA-2013SE49849

PATIENT
  Age: 69 Year
  Sex: Male
  Weight: 80 kg

DRUGS (3)
  1. OMEPRAZOLE (MYLAN) [Suspect]
     Route: 048
  2. VORICONAZOLE [Interacting]
     Indication: INTERVERTEBRAL DISCITIS
     Route: 042
     Dates: start: 20130510
  3. VORICONAZOLE [Interacting]
     Indication: INTERVERTEBRAL DISCITIS
     Route: 042
     Dates: start: 20130510

REACTIONS (4)
  - Drug interaction [Unknown]
  - Drug level increased [Recovered/Resolved]
  - Aspergillus infection [Unknown]
  - Intervertebral discitis [Unknown]
